FAERS Safety Report 8132426-7 (Version None)
Quarter: 2012Q1

REPORT INFORMATION
  Report Type: 
  Country: None (occurrence: None)
  Receive Date: 20120213
  Receipt Date: 20120209
  Transmission Date: 20120608
  Serious: Yes (Life-Threatening, Hospitalization)
  Sender: FDA-Public Use
  Company Number: FR-B.I. PHARMACEUTICALS,INC./RIDGEFIELD-2011-FF-00103FF

PATIENT
  Sex: Female

DRUGS (7)
  1. PRAMIPEXOLE DIHYDROCHLORIDE [Suspect]
     Dosage: 1.4 MG
     Route: 048
     Dates: start: 20091201, end: 20110226
  2. SYMBICORT [Concomitant]
     Dosage: 800 MG
     Route: 055
  3. NOCTAMIDE [Concomitant]
     Dosage: 2 MG
     Route: 048
  4. PRAMIPEXOLE DIHYDROCHLORIDE [Suspect]
     Indication: RESTLESS LEGS SYNDROME
     Dosage: 0.36 MG
     Route: 048
     Dates: start: 20080401
  5. PRAMIPEXOLE DIHYDROCHLORIDE [Suspect]
     Dosage: 0.35 MG
     Route: 048
  6. ZOLOFT [Concomitant]
     Dosage: 100 MG
     Route: 048
  7. PRAMIPEXOLE DIHYDROCHLORIDE [Suspect]
     Dosage: 0.7 MG
     Route: 048

REACTIONS (4)
  - THEFT [None]
  - SUICIDE ATTEMPT [None]
  - PATHOLOGICAL GAMBLING [None]
  - DEPRESSION [None]
